FAERS Safety Report 4313130-X (Version None)
Quarter: 2004Q1

REPORT INFORMATION
  Report Type: 
  Country: None (occurrence: None)
  Receive Date: 20040304
  Receipt Date: 20040213
  Transmission Date: 20041129
  Serious: Yes (Other)
  Sender: FDA-Public Use
  Company Number: JP_040102532

PATIENT
  Age: 66 Year
  Sex: Male
  Weight: 55 kg

DRUGS (7)
  1. VANCOMYCIN [Suspect]
     Indication: PERITONITIS
     Dosage: 250 MG/2 DAY
     Dates: start: 20031031, end: 20031122
  2. VANCOMYCIN [Suspect]
     Indication: STAPHYLOCOCCAL INFECTION
     Dosage: 250 MG/2 DAY
     Dates: start: 20031031, end: 20031122
  3. DIGOXIN [Concomitant]
  4. ROCALTROL [Concomitant]
  5. ALLOPURINOL [Concomitant]
  6. FAMOTIDINE [Concomitant]
  7. HOKUNALIN (TULOBUTEROL HYDROCHLORIDE) [Concomitant]

REACTIONS (4)
  - DERMATITIS EXFOLIATIVE [None]
  - PERITONITIS [None]
  - SKIN DESQUAMATION [None]
  - STAPHYLOCOCCAL INFECTION [None]
